FAERS Safety Report 9805187 (Version 6)
Quarter: 2016Q2

REPORT INFORMATION
  Report Type: Report from Study
  Country: CN (occurrence: CN)
  Receive Date: 20140109
  Receipt Date: 20160506
  Transmission Date: 20160815
  Serious: Yes (Life-Threatening)
  Sender: FDA-Public Use
  Company Number: CN-ROCHE-1330806

PATIENT
  Age: 44 Year
  Sex: Female
  Weight: 60 kg

DRUGS (24)
  1. VINCRISTINE [Suspect]
     Active Substance: VINCRISTINE
     Indication: DIFFUSE LARGE B-CELL LYMPHOMA
     Dosage: DATE OF MOST RECENT DOSE PRIOR TO NEUTROPENIA WITH FEVER ONSET : 27/DEC/2013
     Route: 040
     Dates: start: 20131227
  2. INSULIN [Concomitant]
     Active Substance: INSULIN NOS
     Indication: DIABETES MELLITUS
     Route: 065
     Dates: start: 20131220, end: 20140108
  3. IMIPENEM AND CILASTATIN [Concomitant]
     Active Substance: CILASTATIN SODIUM\IMIPENEM
     Route: 065
     Dates: start: 20140103, end: 20140106
  4. OBINUTUZUMAB [Suspect]
     Active Substance: OBINUTUZUMAB
     Indication: DIFFUSE LARGE B-CELL LYMPHOMA
     Dosage: DATE OF MOST RECENT DOSE (250 ML, DOSE CONCENTRATION : 4MG/ML) PRIOR TO NEUTROPENIA WITH FEVER ONSET
     Route: 042
     Dates: start: 20131226
  5. DOXORUBICIN [Suspect]
     Active Substance: DOXORUBICIN
     Indication: DIFFUSE LARGE B-CELL LYMPHOMA
     Dosage: DATE OF MOST RECENT DOSE PRIOR TO NEUTROPENIA WITH FEVER ONSET : 27/DEC/2013
     Route: 042
     Dates: start: 20131227
  6. VITAMIN K [Concomitant]
     Active Substance: PHYTONADIONE
     Indication: UTERINE HAEMORRHAGE
     Route: 065
     Dates: start: 20131229, end: 20131230
  7. DIPHENHYDRAMINE HCL [Concomitant]
     Active Substance: DIPHENHYDRAMINE HYDROCHLORIDE
     Route: 065
     Dates: start: 20131229, end: 20131229
  8. PARACETAMOL [Concomitant]
     Active Substance: ACETAMINOPHEN
     Indication: ALLERGY PROPHYLAXIS
     Route: 065
     Dates: start: 20131226, end: 20131226
  9. DIPHENHYDRAMINE HCL [Concomitant]
     Active Substance: DIPHENHYDRAMINE HYDROCHLORIDE
     Route: 065
     Dates: start: 20140104, end: 20140104
  10. TROPISETRON HCL [Concomitant]
     Indication: PROPHYLAXIS OF NAUSEA AND VOMITING
     Route: 065
     Dates: start: 20131227, end: 20131227
  11. TROPISETRON HCL [Concomitant]
     Indication: PROPHYLAXIS OF NAUSEA AND VOMITING
  12. CYCLOPHOSPHAMIDE. [Suspect]
     Active Substance: CYCLOPHOSPHAMIDE
     Indication: DIFFUSE LARGE B-CELL LYMPHOMA
     Dosage: DATE OF MOST RECENT DOSE PRIOR TO NEUTROPENIA WITH FEVER ONSET : 27/DEC/2013
     Route: 042
     Dates: start: 20131227
  13. DIPHENHYDRAMINE HCL [Concomitant]
     Active Substance: DIPHENHYDRAMINE HYDROCHLORIDE
     Indication: ALLERGY PROPHYLAXIS
     Route: 065
     Dates: start: 20131226, end: 20131226
  14. DIPHENHYDRAMINE HCL [Concomitant]
     Active Substance: DIPHENHYDRAMINE HYDROCHLORIDE
     Route: 065
     Dates: start: 20140109, end: 20140109
  15. LIDOCAIN [Concomitant]
     Active Substance: LIDOCAINE
     Route: 065
     Dates: start: 20131220, end: 20131226
  16. DIPHENHYDRAMINE HCL [Concomitant]
     Active Substance: DIPHENHYDRAMINE HYDROCHLORIDE
     Route: 065
     Dates: start: 20140102, end: 20140102
  17. PANTOPRAZOLE [Concomitant]
     Active Substance: PANTOPRAZOLE SODIUM
     Indication: PEPTIC ULCER
     Route: 065
     Dates: start: 20131226, end: 20131229
  18. SOLU-MEDROL [Concomitant]
     Active Substance: METHYLPREDNISOLONE SODIUM SUCCINATE
     Indication: ALLERGY PROPHYLAXIS
     Route: 065
     Dates: start: 20131226, end: 20131226
  19. PREDNISOLONE. [Suspect]
     Active Substance: PREDNISOLONE
     Indication: DIFFUSE LARGE B-CELL LYMPHOMA
     Dosage: DATE OF MOST RECENT DOSE PRIOR TO NEUTROPENIA WITH FEVER ONSET (100MG) : 31/DEC/2013.
     Route: 048
     Dates: start: 20131227
  20. ETAMSYLATE [Concomitant]
     Active Substance: ETHAMSYLATE
     Indication: UTERINE HAEMORRHAGE
     Route: 065
     Dates: start: 20131229, end: 20131231
  21. HAEMOCOAGULASE ATROX [Concomitant]
     Indication: UTERINE HAEMORRHAGE
     Route: 065
     Dates: start: 20131229, end: 20140101
  22. PARACETAMOL [Concomitant]
     Active Substance: ACETAMINOPHEN
     Route: 065
     Dates: start: 20140102, end: 20140102
  23. PARACETAMOL [Concomitant]
     Active Substance: ACETAMINOPHEN
     Route: 065
     Dates: start: 20140109, end: 20140109
  24. SODIUM BICARBONATE. [Concomitant]
     Active Substance: SODIUM BICARBONATE
     Route: 065
     Dates: start: 20131226, end: 20131229

REACTIONS (1)
  - Febrile neutropenia [Recovered/Resolved]

NARRATIVE: CASE EVENT DATE: 20140103
